FAERS Safety Report 4871509-1 (Version None)
Quarter: 2005Q4

REPORT INFORMATION
  Report Type: 
  Country: None (occurrence: None)
  Receive Date: 20051229
  Receipt Date: 20051215
  Transmission Date: 20060501
  Serious: Yes (Other)
  Sender: FDA-Public Use
  Company Number: US200512002693

PATIENT
  Age: 78 Year
  Sex: Female

DRUGS (2)
  1. SYMBYAX (OLANZAPINE AND FLUOXETINE HYDROCHLORIDE) CAPSULE, 6/50MG [Suspect]
     Indication: DEPRESSION
     Dates: start: 20040601, end: 20051101
  2. ZYPREXA [Suspect]
     Indication: DEPRESSION
     Dosage: 5 MG
     Dates: start: 20051001, end: 20051101

REACTIONS (9)
  - ARTHRALGIA [None]
  - ASTHENIA [None]
  - BACK DISORDER [None]
  - CONDITION AGGRAVATED [None]
  - CRYING [None]
  - DECREASED ACTIVITY [None]
  - FEAR [None]
  - GAIT DISTURBANCE [None]
  - PARAESTHESIA [None]
